FAERS Safety Report 4425040-8 (Version None)
Quarter: 2004Q3

REPORT INFORMATION
  Report Type: 
  Country: None (occurrence: None)
  Receive Date: 20040813
  Receipt Date: 20040414
  Transmission Date: 20050211
  Serious: Yes (Life-Threatening)
  Sender: FDA-Public Use
  Company Number: 200411393JP

PATIENT
  Age: 81 Year
  Sex: Female
  Weight: 38 kg

DRUGS (10)
  1. ARAVA [Suspect]
     Indication: RHEUMATOID ARTHRITIS
     Route: 048
     Dates: start: 20031208, end: 20040412
  2. PREDONINE [Concomitant]
     Indication: RHEUMATOID ARTHRITIS
     Route: 048
     Dates: start: 20020520, end: 20040412
  3. AMOBAN [Concomitant]
     Indication: INSOMNIA
     Route: 048
     Dates: start: 20000112, end: 20040412
  4. DILTIAZEM HYDROCHLORIDE [Concomitant]
     Indication: CARDIAC FAILURE
     Route: 048
     Dates: start: 20000112, end: 20040412
  5. RIMATIL [Concomitant]
     Indication: RHEUMATOID ARTHRITIS
     Route: 048
     Dates: start: 20030602, end: 20040105
  6. INFREE [Concomitant]
     Indication: ARTHRITIS
     Route: 048
     Dates: start: 20030125, end: 20031125
  7. SELBEX [Concomitant]
     Indication: GASTRITIS
     Route: 048
     Dates: start: 20030125
  8. GASTER [Concomitant]
     Indication: GASTRIC ULCER
     Route: 048
     Dates: start: 20030125, end: 20031125
  9. TAKEPRON [Concomitant]
     Indication: GASTRIC ULCER
     Route: 048
     Dates: start: 20031126
  10. METHOTREXATE [Concomitant]
     Dosage: DOSE: 4MG/WEEK
     Route: 048
     Dates: end: 20030602

REACTIONS (7)
  - ATROPHY [None]
  - GASTRIC CANCER [None]
  - GOITRE [None]
  - INTESTINAL DILATATION [None]
  - LYMPHADENOPATHY [None]
  - METASTASES TO SMALL INTESTINE [None]
  - SIGNET-RING CELL CARCINOMA [None]
